FAERS Safety Report 6023557-6 (Version None)
Quarter: 2008Q4

REPORT INFORMATION
  Report Type: 
  Country: None (occurrence: None)
  Receive Date: 20081226
  Receipt Date: 20081226
  Transmission Date: 20090506
  Serious: Yes (Hospitalization, Disabling)
  Sender: FDA-Public Use
  Company Number: None

PATIENT
  Sex: Female
  Weight: 63.5036 kg

DRUGS (2)
  1. DOXYCYCLINE CAPSULE 100 MG [Suspect]
     Indication: SEPSIS PASTEURELLA
     Dosage: 2 TIMES A DAY FOR 10 DAYS PO
     Route: 048
     Dates: start: 20081212, end: 20081216
  2. RIFAMPIN [Suspect]
     Dosage: 2 TIMES A DAY FOR 10 DAYS PO
     Route: 048
     Dates: start: 20081212, end: 20081216

REACTIONS (13)
  - ABDOMINAL PAIN [None]
  - BURNING SENSATION [None]
  - DIARRHOEA [None]
  - DYSPHONIA [None]
  - ERYTHEMA [None]
  - GAIT DISTURBANCE [None]
  - GLYCOSYLATED HAEMOGLOBIN INCREASED [None]
  - HEADACHE [None]
  - HYPERAESTHESIA [None]
  - LIMB DISCOMFORT [None]
  - SKIN SWELLING [None]
  - VOMITING [None]
  - VULVOVAGINAL MYCOTIC INFECTION [None]
